FAERS Safety Report 13622488 (Version 1)
Quarter: 2017Q2

REPORT INFORMATION
  Report Type: Spontaneous
  Country: US (occurrence: US)
  Receive Date: 20170607
  Receipt Date: 20170607
  Transmission Date: 20170830
  Serious: No
  Sender: FDA-Public Use
  Company Number: US-ROCHE-768795

PATIENT
  Sex: Male

DRUGS (3)
  1. SELZENTRY [Concomitant]
     Active Substance: MARAVIROC
     Route: 065
  2. FUZEON [Suspect]
     Active Substance: ENFUVIRTIDE
     Indication: HIV INFECTION
     Dosage: FORM:INJECTION. FREQUENCY: TWO TIMES A DAY.
     Route: 058
  3. ALCOHOL. [Concomitant]
     Active Substance: ALCOHOL
     Indication: HIV INFECTION
     Route: 065

REACTIONS (4)
  - Injection site reaction [Recovered/Resolved]
  - Injection site pain [Recovered/Resolved]
  - Injection site bruising [Recovered/Resolved]
  - Injection site urticaria [Recovered/Resolved]
